FAERS Safety Report 23130365 (Version 1)
Quarter: 2023Q4

REPORT INFORMATION
  Report Type: Spontaneous
  Country: BR (occurrence: BR)
  Receive Date: 20231031
  Receipt Date: 20231031
  Transmission Date: 20240110
  Serious: Yes (Other)
  Sender: FDA-Public Use
  Company Number: BR-SA-SAC20231030002239

PATIENT
  Age: 5 Year
  Sex: Male

DRUGS (1)
  1. SABRIL [Suspect]
     Active Substance: VIGABATRIN
     Indication: Seizure
     Dosage: 1.5 DF, BID (1 AND A HALF TABLETS IN THE MORNING AND 1 AND A HALF TABLETS AT NIGHT)
     Route: 048
     Dates: start: 2022

REACTIONS (5)
  - Renal failure [Unknown]
  - Dysuria [Unknown]
  - Urinary tract infection [Unknown]
  - Bowel movement irregularity [Unknown]
  - Wrong technique in product usage process [Unknown]

NARRATIVE: CASE EVENT DATE: 20230301
